FAERS Safety Report 5600440-9 (Version None)
Quarter: 2008Q1

REPORT INFORMATION
  Report Type: 
  Country: None (occurrence: None)
  Receive Date: 20080123
  Receipt Date: 20080111
  Transmission Date: 20080703
  Serious: Yes (Death)
  Sender: FDA-Public Use
  Company Number: US-TYCO HEALTHCARE/MALLINCKRODT-T200800028

PATIENT

DRUGS (2)
  1. METHADOSE [Suspect]
     Indication: PAIN
  2. OXYCONTIN [Suspect]
     Indication: PAIN
     Dosage: GREATER THAN 60 MG/DAY

REACTIONS (1)
  - CARDIAC DISORDER [None]
